FAERS Safety Report 8811598 (Version 1)
Quarter: 2012Q4

REPORT INFORMATION
  Report Type: 
  Country: CH (occurrence: CH)
  Receive Date: 20120927
  Receipt Date: 20120927
  Transmission Date: 20130627
  Serious: Yes (Hospitalization)
  Sender: FDA-Public Use
  Company Number: PHHY2012CH081905

PATIENT
  Age: 53 Year
  Sex: Male

DRUGS (5)
  1. LEPONEX [Suspect]
     Indication: DEPRESSION
     Dosage: 200 mg, QD
     Route: 048
     Dates: start: 20120626
  2. LEPONEX [Suspect]
     Route: 048
     Dates: start: 20120627
  3. ZOLPIDEM [Suspect]
     Indication: DEPRESSION
     Dosage: 10 mg, QD (long term)
     Route: 048
  4. LYRICA [Suspect]
     Indication: DEPRESSION
     Dosage: 150 mg, QD (long term)
     Route: 048
  5. SAROTEN [Suspect]
     Indication: DEPRESSION
     Dosage: 4 DF, daily
     Route: 048

REACTIONS (5)
  - Extrasystoles [Recovered/Resolved]
  - Coma scale abnormal [Recovered/Resolved]
  - Electrocardiogram QT prolonged [Recovered/Resolved]
  - Incorrect dose administered [Recovered/Resolved]
  - Somnolence [Unknown]
